FAERS Safety Report 18255648 (Version 2)
Quarter: 2020Q3

REPORT INFORMATION
  Report Type: Report from Study
  Country: AU (occurrence: AU)
  Receive Date: 20200911
  Receipt Date: 20200915
  Transmission Date: 20201103
  Serious: Yes (Life-Threatening, Hospitalization)
  Sender: FDA-Public Use
  Company Number: AU-AMGEN-AUSCT2020146707

PATIENT
  Age: 68 Year
  Sex: Female
  Weight: 130.5 kg

DRUGS (24)
  1. DEXAMETHASONE. [Concomitant]
     Active Substance: DEXAMETHASONE
     Dosage: 8?20 MILLIGRAM
     Route: 042
     Dates: start: 20200826, end: 20200902
  2. PREGABALIN. [Concomitant]
     Active Substance: PREGABALIN
     Dosage: 600 MILLIGRAM
     Route: 048
     Dates: start: 20140301
  3. BLINATUMOMAB [Suspect]
     Active Substance: BLINATUMOMAB
     Indication: DIFFUSE LARGE B-CELL LYMPHOMA
     Dosage: 28 MICROGRAM, QD
     Route: 042
     Dates: start: 20200728
  4. CYCLIZINE [Concomitant]
     Active Substance: CYCLIZINE
     Dosage: 25 MILLIGRAM
     Route: 048
     Dates: start: 20200218
  5. METOCLOPRAMIDE. [Concomitant]
     Active Substance: METOCLOPRAMIDE
     Dosage: 10 MILLIGRAM
     Route: 048
     Dates: start: 20191029
  6. RANITIDINE. [Concomitant]
     Active Substance: RANITIDINE
     Dosage: 300 MILLIGRAM
     Route: 048
     Dates: start: 20200225
  7. DAPSONE. [Concomitant]
     Active Substance: DAPSONE
     Dosage: 10 MILLIGRAM
     Route: 048
     Dates: start: 20200225
  8. TELMISARTAN. [Concomitant]
     Active Substance: TELMISARTAN
     Dosage: 80 MILLIGRAM
     Route: 048
     Dates: start: 20111201
  9. HYDROCHLOROTHIAZIDE. [Concomitant]
     Active Substance: HYDROCHLOROTHIAZIDE
     Dosage: 25 MILLIGRAM
     Route: 048
     Dates: start: 20111201
  10. AMITRIPTYLINE [Concomitant]
     Active Substance: AMITRIPTYLINE
     Dosage: 50 MILLIGRAM
     Route: 048
     Dates: start: 20170201
  11. ROSUVASTIN [Concomitant]
     Active Substance: ROSUVASTATIN
     Dosage: 5 MILLIGRAM
     Route: 048
     Dates: start: 20110301
  12. ENOXAPARIN [Concomitant]
     Active Substance: ENOXAPARIN
     Dosage: 130 MILLIGRAM
     Route: 058
     Dates: start: 20200716
  13. INSULIN [Concomitant]
     Active Substance: INSULIN NOS
     Dosage: 70 INTERNATIONAL UNIT
     Route: 058
     Dates: start: 20030101
  14. DILTIAZEM. [Concomitant]
     Active Substance: DILTIAZEM
     Dosage: 360 MILLIGRAM
     Route: 048
     Dates: start: 20141101
  15. RABEPRAZOLE [Concomitant]
     Active Substance: RABEPRAZOLE
     Dosage: 20 MILLIGRAM
     Route: 048
     Dates: start: 20190301
  16. DOXYCYCLINE. [Concomitant]
     Active Substance: DOXYCYCLINE
     Dosage: 100 MILLIGRAM
     Route: 048
     Dates: start: 20180801
  17. SODIUM BICARBONATE. [Concomitant]
     Active Substance: SODIUM BICARBONATE
     Dosage: 10 MILLILITER
     Route: 048
     Dates: start: 20191015
  18. VALTREX [Concomitant]
     Active Substance: VALACYCLOVIR HYDROCHLORIDE
     Dosage: 500 MILLIGRAM
     Route: 048
     Dates: start: 20191126
  19. GRANISETRON [Concomitant]
     Active Substance: GRANISETRON
     Dosage: 2 MILLIGRAM
     Route: 048
     Dates: start: 20191217
  20. ONDANSETRON [Concomitant]
     Active Substance: ONDANSETRON
     Dosage: 8 MILLIGRAM
     Route: 048
     Dates: start: 20200218
  21. NOVORAPID [Concomitant]
     Active Substance: INSULIN ASPART
     Dosage: 10 UNK
     Route: 058
     Dates: start: 20030201
  22. PEMBROLIZUMAB. [Suspect]
     Active Substance: PEMBROLIZUMAB
     Indication: DIFFUSE LARGE B-CELL LYMPHOMA
     Dosage: 200 MILLIGRAM
     Route: 042
     Dates: start: 20200815, end: 20200904
  23. FRUSEMIDE [FUROSEMIDE] [Concomitant]
     Active Substance: FUROSEMIDE
     Dosage: 20 MILLIGRAM
     Route: 048
     Dates: start: 20190401
  24. METFORMIN [Concomitant]
     Active Substance: METFORMIN HYDROCHLORIDE
     Dosage: 850 MILLIGRAM
     Route: 048
     Dates: start: 20130501

REACTIONS (2)
  - Neurotoxicity [Not Recovered/Not Resolved]
  - Hypoglycaemia [Not Recovered/Not Resolved]

NARRATIVE: CASE EVENT DATE: 20200908
